FAERS Safety Report 5910024-0 (Version None)
Quarter: 2008Q4

REPORT INFORMATION
  Report Type: 
  Country: None (occurrence: None)
  Receive Date: 20081007
  Receipt Date: 20080425
  Transmission Date: 20090506
  Serious: No
  Sender: FDA-Public Use
  Company Number: US-ASTRAZENECA-2006UW04748

PATIENT
  Age: 67 Year
  Sex: Female
  Weight: 65.8 kg

DRUGS (6)
  1. ARIMIDEX [Suspect]
     Indication: BREAST CANCER FEMALE
     Route: 048
     Dates: end: 20060301
  2. ARIMIDEX [Suspect]
     Route: 048
  3. ATENOLOL [Concomitant]
  4. HCL [Concomitant]
  5. VITAMINS [Concomitant]
  6. HERBS [Concomitant]

REACTIONS (3)
  - INFECTION [None]
  - MYALGIA [None]
  - PELVIC PAIN [None]
